FAERS Safety Report 18717505 (Version 1)
Quarter: 2021Q1

REPORT INFORMATION
  Report Type: Spontaneous
  Country: US (occurrence: US)
  Receive Date: 20210108
  Receipt Date: 20210108
  Transmission Date: 20210419
  Serious: Yes (Other)
  Sender: FDA-Public Use
  Company Number: US-AMGEN-USASP2021001251

PATIENT
  Sex: Female

DRUGS (1)
  1. PROLIA [Suspect]
     Active Substance: DENOSUMAB
     Indication: PRODUCT USED FOR UNKNOWN INDICATION
     Dosage: UNK
     Route: 065

REACTIONS (9)
  - Influenza [Unknown]
  - Immunodeficiency [Unknown]
  - Lower limb fracture [Unknown]
  - Sinusitis [Unknown]
  - Gait disturbance [Unknown]
  - Upper limb fracture [Unknown]
  - Viral infection [Unknown]
  - Rib fracture [Unknown]
  - Streptococcal infection [Unknown]
